FAERS Safety Report 17615817 (Version 1)
Quarter: 2020Q2

REPORT INFORMATION
  Report Type: Spontaneous
  Country: US (occurrence: US)
  Receive Date: 20200401
  Receipt Date: 20200401
  Transmission Date: 20200713
  Serious: Yes (Other)
  Sender: FDA-Public Use
  Company Number: None

PATIENT
  Age: 69 Year
  Sex: Female
  Weight: 124.2 kg

DRUGS (22)
  1. CAPECITABINE. [Suspect]
     Active Substance: CAPECITABINE
     Indication: BREAST CANCER
     Route: 048
     Dates: start: 20191030
  2. MAGNESIUM [Concomitant]
     Active Substance: MAGNESIUM
  3. IRON [Concomitant]
     Active Substance: IRON
  4. AROMASIN [Concomitant]
     Active Substance: EXEMESTANE
  5. VITAMIN D [Concomitant]
     Active Substance: VITAMIN D NOS
  6. ATENOLOL. [Concomitant]
     Active Substance: ATENOLOL
  7. VITAMIN K [Concomitant]
     Active Substance: PHYTONADIONE
  8. VITAMIN B COMPLEX [Concomitant]
     Active Substance: CYANOCOBALAMIN\DEXPANTHENOL\NIACINAMIDE\PYRIDOXINE HYDROCHLORIDE\RIBOFLAVIN 5^-PHOSPHATE SODIUM\THIAMINE HYDROCHLORIDE\VITAMIN B COMPLEX
  9. ZOLPIDEM [Concomitant]
     Active Substance: ZOLPIDEM TARTRATE
  10. COQ10 [Concomitant]
     Active Substance: UBIDECARENONE
  11. CALCIUM [Concomitant]
     Active Substance: CALCIUM
  12. LEXAPRO [Concomitant]
     Active Substance: ESCITALOPRAM OXALATE
  13. NORCO [Concomitant]
     Active Substance: ACETAMINOPHEN\HYDROCODONE BITARTRATE
  14. SELENIUM [Concomitant]
     Active Substance: SELENIUM
  15. BORON [Concomitant]
     Active Substance: BORON
  16. CELEBREX [Concomitant]
     Active Substance: CELECOXIB
  17. NEXIUM [Concomitant]
     Active Substance: ESOMEPRAZOLE MAGNESIUM
  18. LISINOPRIL. [Concomitant]
     Active Substance: LISINOPRIL
  19. ALPRAZOLAM. [Concomitant]
     Active Substance: ALPRAZOLAM
  20. ZINC. [Concomitant]
     Active Substance: ZINC
  21. TUMS [Concomitant]
     Active Substance: CALCIUM CARBONATE
  22. LYRICA [Concomitant]
     Active Substance: PREGABALIN

REACTIONS (1)
  - Disease progression [None]
